FAERS Safety Report 5047181-7 (Version None)
Quarter: 2006Q3

REPORT INFORMATION
  Report Type: 
  Country: None (occurrence: None)
  Receive Date: 20060703
  Receipt Date: 20060621
  Transmission Date: 20061208
  Serious: Yes (Hospitalization, Other)
  Sender: FDA-Public Use
  Company Number: 2006066741

PATIENT
  Age: 74 Year
  Sex: Female

DRUGS (26)
  1. LYRICA [Suspect]
     Indication: POST HERPETIC NEURALGIA
     Dosage: 150 MG (75 MG, 2 IN 1 D)
     Dates: start: 20060410, end: 20060412
  2. ZETIA [Suspect]
     Dosage: 10 MG (10 MG, 1 IN 1 D)
  3. LISINOPRIL [Suspect]
  4. CARDIZEM CD [Suspect]
     Dosage: 180 MG (180 MG, 1 IN 1 D)
  5. PROCARDIA XL [Concomitant]
  6. ZESTORETIC [Concomitant]
  7. KETAMINE (KETAMINE) [Concomitant]
  8. GABAPENTIN [Concomitant]
  9. BACLOFEN [Concomitant]
  10. CLONIDINE [Concomitant]
  11. LIDOCAINE [Concomitant]
  12. OXYCONTIN [Concomitant]
  13. ALL OTHER THERAPEUTIC PRODUCTS (ALL OTHER THERAPEUTIC PRODUCTS) [Concomitant]
  14. ASPIRIN [Concomitant]
  15. LIPITOR [Concomitant]
  16. METFORMIN [Concomitant]
  17. SENOKOT [Concomitant]
  18. VITAMINS (VITAMINS) [Concomitant]
  19. FLAXSEED OIL (LINSEED OIL) [Concomitant]
  20. ALBUTEROL [Concomitant]
  21. BUDESONIDE [Concomitant]
  22. ACETAMINOPHEN [Concomitant]
  23. NITROSTAT [Concomitant]
  24. GLUCOSAMINE (GLUCOSAMINE) [Concomitant]
  25. ACETYLSALICYLIC ACID SRT [Concomitant]
  26. DISOPYRAMIDE [Concomitant]

REACTIONS (47)
  - ALANINE AMINOTRANSFERASE INCREASED [None]
  - ANAEMIA [None]
  - ASPARTATE AMINOTRANSFERASE INCREASED [None]
  - ASTHENIA [None]
  - ATRIOVENTRICULAR BLOCK SECOND DEGREE [None]
  - AZOTAEMIA [None]
  - BLOOD GLUCOSE INCREASED [None]
  - BLOOD POTASSIUM ABNORMAL [None]
  - BLOOD PRESSURE INCREASED [None]
  - BRADYCARDIA [None]
  - BUNDLE BRANCH BLOCK RIGHT [None]
  - CARDIAC MURMUR [None]
  - CEREBRAL ATROPHY [None]
  - CONFUSIONAL STATE [None]
  - DECREASED APPETITE [None]
  - DEHYDRATION [None]
  - DIABETIC NEPHROPATHY [None]
  - DIPLOPIA [None]
  - DISORIENTATION [None]
  - DRUG INTOLERANCE [None]
  - DRUG TOXICITY [None]
  - DYSPNOEA [None]
  - ERYTHEMA [None]
  - FALL [None]
  - FEELING DRUNK [None]
  - FLUID OVERLOAD [None]
  - GAZE PALSY [None]
  - HAEMOGLOBIN DECREASED [None]
  - HALLUCINATION [None]
  - HALLUCINATION, VISUAL [None]
  - HYPERKALAEMIA [None]
  - HYPOTENSION [None]
  - HYPOXIA [None]
  - MENTAL STATUS CHANGES [None]
  - METABOLIC DISORDER [None]
  - NERVOUS SYSTEM DISORDER [None]
  - OEDEMA PERIPHERAL [None]
  - ORAL INTAKE REDUCED [None]
  - PULMONARY OEDEMA [None]
  - RENAL FAILURE [None]
  - RENAL IMPAIRMENT [None]
  - RHABDOMYOLYSIS [None]
  - SOMNOLENCE [None]
  - SYNCOPE [None]
  - TENDERNESS [None]
  - TREMOR [None]
  - VOMITING [None]
